FAERS Safety Report 6529369-9 (Version None)
Quarter: 2010Q1

REPORT INFORMATION
  Report Type: 
  Country: None (occurrence: None)
  Receive Date: 20100107
  Receipt Date: 20100104
  Transmission Date: 20100710
  Serious: Yes (Death)
  Sender: FDA-Public Use
  Company Number: FR-ASTRAZENECA-2010SE00078

PATIENT
  Age: 63 Year
  Sex: Male

DRUGS (7)
  1. NEXIUM [Suspect]
     Route: 048
  2. PANDEMRIX [Suspect]
     Indication: INFLUENZA IMMUNISATION
     Route: 030
     Dates: start: 20091222, end: 20091222
  3. CEFTRIAXONE [Suspect]
  4. CACIT VITAMINE D3 [Suspect]
  5. FORLAX [Suspect]
  6. MIANSERINE [Suspect]
  7. STILNOX [Suspect]

REACTIONS (1)
  - DEATH [None]
